FAERS Safety Report 11472097 (Version 3)
Quarter: 2016Q1

REPORT INFORMATION
  Report Type: Spontaneous
  Country: US (occurrence: US)
  Receive Date: 20150908
  Receipt Date: 20160126
  Transmission Date: 20160525
  Serious: No
  Sender: FDA-Public Use
  Company Number: US-PFIZER INC-2015293312

PATIENT
  Age: 61 Year
  Sex: Female

DRUGS (16)
  1. CURAMIN [Concomitant]
     Active Substance: HERBALS
     Dosage: 2 DF, 2X/DAY
  2. LORAZEPAM. [Concomitant]
     Active Substance: LORAZEPAM
     Dosage: UNK, WEEKLY(? TWICE WEEKLY)
  3. DEPO-ESTRADIOL [Suspect]
     Active Substance: ESTRADIOL CYPIONATE
     Indication: HYSTERECTOMY
     Dosage: 5 MG, MONTHLY
     Route: 030
  4. TRAMADOL. [Concomitant]
     Active Substance: TRAMADOL
     Indication: BACK PAIN
     Dosage: 300 MG, DAILY
     Dates: start: 1991
  5. TIZANIDINE. [Concomitant]
     Active Substance: TIZANIDINE
     Dosage: 2 MG, AS NEEDED, AT NIGHT
  6. COQ 10 [Concomitant]
     Active Substance: UBIDECARENONE
     Dosage: 1 DF, DAILY
  7. PLANT STEROLS [Concomitant]
     Dosage: UNK
  8. QVAR [Concomitant]
     Active Substance: BECLOMETHASONE DIPROPIONATE
     Dosage: 2 DF, 2X/DAY AS NEEDED
     Route: 045
  9. TIZANIDINE. [Concomitant]
     Active Substance: TIZANIDINE
     Dosage: UNK(1/2, 1-3 WEEKLY)
  10. VITAMIN D3 [Concomitant]
     Active Substance: CHOLECALCIFEROL
     Dosage: 5000 IU, DAILY
     Route: 060
  11. ALBUTEROL. [Concomitant]
     Active Substance: ALBUTEROL
     Dosage: 2 DF, AS NEEDED
  12. VITAMIN B COMPLEX [Concomitant]
     Active Substance: CYANOCOBALAMIN\DEXPANTHENOL\NIACINAMIDE\PYRIDOXINE HYDROCHLORIDE\RIBOFLAVIN 5^-PHOSPHATE SODIUM\THIAMINE HYDROCHLORIDE\VITAMIN B COMPLEX
     Dosage: UNK, DAILY
     Route: 060
  13. VITAMIN D3 [Concomitant]
     Active Substance: CHOLECALCIFEROL
     Dosage: 2000 IU, 2X/DAY
     Route: 060
  14. HYDROCODONE/ACETAMINOPHEN [Concomitant]
     Active Substance: ACETAMINOPHEN\HYDROCODONE
     Dosage: UNK, DAILY
     Dates: start: 201411
  15. DEPO-ESTRADIOL [Suspect]
     Active Substance: ESTRADIOL CYPIONATE
     Dosage: 1 ML, MONTHLY
     Dates: start: 1993
  16. CURAMIN [Concomitant]
     Active Substance: HERBALS
     Dosage: UNK, DAILY

REACTIONS (2)
  - Bone pain [Not Recovered/Not Resolved]
  - Discomfort [Unknown]

NARRATIVE: CASE EVENT DATE: 1990
